FAERS Safety Report 4283513-5 (Version None)
Quarter: 2004Q1

REPORT INFORMATION
  Report Type: 
  Country: None (occurrence: None)
  Receive Date: 20040120
  Receipt Date: 20030304
  Transmission Date: 20041129
  Serious: Yes (Hospitalization)
  Sender: FDA-Public Use
  Company Number: NSADSS2003010900

PATIENT
  Age: 24 Year
  Sex: Female

DRUGS (3)
  1. COPPER T MODEL TCU 380A [Suspect]
     Indication: INTRA-UTERINE CONTRACEPTIVE DEVICE INSERTION
     Dosage: INTRAUTERINE
     Route: 015
     Dates: start: 20020925, end: 20030106
  2. PRENATAL ( ) PRENATAL [Concomitant]
  3. VITAMINS ( ) VITAMINS [Concomitant]

REACTIONS (4)
  - ABDOMINAL PAIN [None]
  - ENDOMETRITIS [None]
  - MENSTRUATION IRREGULAR [None]
  - UNINTENDED PREGNANCY [None]
